FAERS Safety Report 7252920-0 (Version None)
Quarter: 2011Q1

REPORT INFORMATION
  Report Type: 
  Country: None (occurrence: None)
  Receive Date: 20110129
  Receipt Date: 20100224
  Transmission Date: 20110831
  Serious: No
  Sender: FDA-Public Use
  Company Number: US-ABBOTT-10P-163-0629644-00

PATIENT
  Sex: Female
  Weight: 119.4 kg

DRUGS (2)
  1. HUMIRA [Suspect]
     Indication: CROHN'S DISEASE
     Route: 058
     Dates: start: 20091019
  2. ZOVIRAX [Interacting]
     Indication: HERPES ZOSTER
     Dates: start: 20100201, end: 20100215

REACTIONS (5)
  - DRUG INTERACTION [None]
  - HERPES ZOSTER [None]
  - DIARRHOEA HAEMORRHAGIC [None]
  - VOMITING [None]
  - NAUSEA [None]
